FAERS Safety Report 23186060 (Version 1)
Quarter: 2023Q4

REPORT INFORMATION
  Report Type: Spontaneous
  Country: US (occurrence: None)
  Receive Date: 20231114
  Receipt Date: 20231114
  Transmission Date: 20240110
  Serious: No
  Sender: FDA-Public Use
  Company Number: None

PATIENT
  Age: 13 Year
  Sex: Male
  Weight: 47.63 kg

DRUGS (1)
  1. LISDEXAMFETAMINE [Suspect]
     Active Substance: LISDEXAMFETAMINE
     Dosage: FREQUENCY : DAILY;?
     Route: 048
     Dates: start: 20230924, end: 20231004

REACTIONS (2)
  - Cough [None]
  - Therapy cessation [None]

NARRATIVE: CASE EVENT DATE: 20231004
